FAERS Safety Report 10528629 (Version 1)
Quarter: 2014Q4

REPORT INFORMATION
  Report Type: Report from Study
  Country: PL (occurrence: PL)
  Receive Date: 20141020
  Receipt Date: 20141020
  Transmission Date: 20150528
  Serious: Yes (Death, Life-Threatening, Hospitalization)
  Sender: FDA-Public Use
  Company Number: PL-ASTRAZENECA-2014SE78928

PATIENT
  Age: 24121 Day
  Sex: Male
  Weight: 71 kg

DRUGS (1)
  1. CLOPIDOGREL [Suspect]
     Active Substance: CLOPIDOGREL BISULFATE
     Indication: PERIPHERAL ARTERIAL OCCLUSIVE DISEASE
     Route: 048
     Dates: start: 20130325

REACTIONS (3)
  - Cardiac arrest [Recovering/Resolving]
  - Hypovolaemic shock [Not Recovered/Not Resolved]
  - Haemorrhage urinary tract [Fatal]

NARRATIVE: CASE EVENT DATE: 20141003
